FAERS Safety Report 6758393-6 (Version None)
Quarter: 2010Q2

REPORT INFORMATION
  Report Type: 
  Country: None (occurrence: None)
  Receive Date: 20100524
  Receipt Date: 20100330
  Transmission Date: 20101027
  Serious: No
  Sender: FDA-Public Use
  Company Number: 009550

PATIENT
  Sex: Female

DRUGS (1)
  1. CIMZIA [Suspect]
     Indication: RHEUMATOID ARTHRITIS
     Dosage: 400 MG, SUBCUTANEOUS
     Route: 058
     Dates: start: 20100101, end: 20100201

REACTIONS (1)
  - HYPERSENSITIVITY [None]
